FAERS Safety Report 18952671 (Version 1)
Quarter: 2021Q1

REPORT INFORMATION
  Report Type: Spontaneous
  Country: US (occurrence: US)
  Receive Date: 20210301
  Receipt Date: 20210301
  Transmission Date: 20210420
  Serious: Yes (Other)
  Sender: FDA-Public Use
  Company Number: US-BAYER-2021-083993

PATIENT
  Sex: Female

DRUGS (1)
  1. SKYLA [Suspect]
     Active Substance: LEVONORGESTREL
     Indication: CONTRACEPTION
     Dosage: 14  ?G PER DAY CONTINOUSLY
     Route: 015
     Dates: start: 202007, end: 202011

REACTIONS (1)
  - Genital haemorrhage [None]

NARRATIVE: CASE EVENT DATE: 2020
